FAERS Safety Report 12673690 (Version 1)
Quarter: 2016Q3

REPORT INFORMATION
  Report Type: Spontaneous
  Country: US (occurrence: US)
  Receive Date: 20160822
  Receipt Date: 20160822
  Transmission Date: 20161109
  Serious: Yes (Hospitalization, Other)
  Sender: FDA-Public Use
  Company Number: US-GLAXOSMITHKLINE-US2016GSK118461

PATIENT
  Age: 77 Year
  Sex: Female

DRUGS (1)
  1. ADVAIR HFA [Suspect]
     Active Substance: FLUTICASONE PROPIONATE\SALMETEROL XINAFOATE
     Indication: CHRONIC OBSTRUCTIVE PULMONARY DISEASE
     Dosage: UNK UNK, U
     Dates: start: 201601

REACTIONS (6)
  - Lung disorder [Unknown]
  - Dehydration [Unknown]
  - Pancreatitis [Unknown]
  - Gallbladder disorder [Unknown]
  - Neoplasm malignant [Unknown]
  - Biopsy lung [Unknown]

NARRATIVE: CASE EVENT DATE: 201604
